FAERS Safety Report 25688021 (Version 1)
Quarter: 2025Q3

REPORT INFORMATION
  Report Type: Spontaneous
  Country: CA (occurrence: CA)
  Receive Date: 20250817
  Receipt Date: 20250817
  Transmission Date: 20251021
  Serious: Yes (Hospitalization, Other)
  Sender: JOHNSON AND JOHNSON
  Company Number: CA-JNJFOC-20250814059

PATIENT
  Age: 53 Year
  Sex: Female

DRUGS (18)
  1. PALIPERIDONE [Suspect]
     Active Substance: PALIPERIDONE
     Indication: Product used for unknown indication
     Route: 048
  2. PALIPERIDONE [Suspect]
     Active Substance: PALIPERIDONE
     Route: 065
  3. CHLORPROMAZINE [Suspect]
     Active Substance: CHLORPROMAZINE
     Indication: Product used for unknown indication
  4. CLOZAPINE [Suspect]
     Active Substance: CLOZAPINE
     Indication: Product used for unknown indication
  5. LORAZEPAM [Suspect]
     Active Substance: LORAZEPAM
     Indication: Product used for unknown indication
  6. OLANZAPINE [Suspect]
     Active Substance: OLANZAPINE
     Indication: Schizoaffective disorder
  7. OLANZAPINE [Suspect]
     Active Substance: OLANZAPINE
     Indication: Major depression
  8. OLANZAPINE [Suspect]
     Active Substance: OLANZAPINE
     Indication: Generalised anxiety disorder
  9. OLANZAPINE [Suspect]
     Active Substance: OLANZAPINE
     Indication: Major depression
  10. OLANZAPINE [Suspect]
     Active Substance: OLANZAPINE
     Indication: Schizoaffective disorder
  11. OLANZAPINE [Suspect]
     Active Substance: OLANZAPINE
     Indication: Generalised anxiety disorder
  12. PERPHENAZINE [Suspect]
     Active Substance: PERPHENAZINE
     Indication: Product used for unknown indication
  13. QUETIAPINE FUMARATE [Suspect]
     Active Substance: QUETIAPINE FUMARATE
     Indication: Generalised anxiety disorder
  14. QUETIAPINE FUMARATE [Suspect]
     Active Substance: QUETIAPINE FUMARATE
     Indication: Schizoaffective disorder
  15. QUETIAPINE FUMARATE [Suspect]
     Active Substance: QUETIAPINE FUMARATE
     Indication: Major depression
  16. SERTRALINE [Suspect]
     Active Substance: SERTRALINE HYDROCHLORIDE
     Indication: Product used for unknown indication
  17. THIORIDAZINE [Suspect]
     Active Substance: THIORIDAZINE
     Indication: Product used for unknown indication
     Route: 048
  18. HALOPERIDOL [Suspect]
     Active Substance: HALOPERIDOL
     Indication: Product used for unknown indication

REACTIONS (13)
  - Apraxia [Recovering/Resolving]
  - Drug ineffective [Unknown]
  - Dyskinesia [Recovering/Resolving]
  - Dystonia [Recovering/Resolving]
  - Head titubation [Recovering/Resolving]
  - Hyponatraemia [Recovering/Resolving]
  - Movement disorder [Recovering/Resolving]
  - Myoclonus [Recovering/Resolving]
  - Parkinsonism [Recovering/Resolving]
  - Petit mal epilepsy [Recovering/Resolving]
  - Polydipsia [Recovering/Resolving]
  - Tremor [Recovering/Resolving]
  - Tardive dyskinesia [Recovering/Resolving]
